FAERS Safety Report 5955143-8 (Version None)
Quarter: 2008Q4

REPORT INFORMATION
  Report Type: 
  Country: None (occurrence: None)
  Receive Date: 20081113
  Receipt Date: 20081113
  Transmission Date: 20090506
  Serious: Yes (Hospitalization)
  Sender: FDA-Public Use
  Company Number: None

PATIENT
  Sex: Female
  Weight: 59.4212 kg

DRUGS (4)
  1. BEVACIZUMAB, GENETECH [Suspect]
     Indication: NON-SMALL CELL LUNG CANCER STAGE IIIB
     Dosage: 15MG/KG Q3WEEKS 041
     Dates: start: 20080930
  2. BEVACIZUMAB, GENETECH [Suspect]
     Indication: NON-SMALL CELL LUNG CANCER STAGE IIIB
     Dosage: 15MG/KG Q3WEEKS 041
     Dates: start: 20081028
  3. ERLOTINIB, GENENTECH [Suspect]
     Dosage: 150MG DAILY 047
     Dates: start: 20080903, end: 20081021
  4. ERLOTINIB, GENENTECH [Suspect]
     Dosage: 150MG DAILY 047
     Dates: start: 20081028

REACTIONS (8)
  - BLOOD PRESSURE INCREASED [None]
  - BODY TEMPERATURE INCREASED [None]
  - CHRONIC OBSTRUCTIVE PULMONARY DISEASE [None]
  - HEART RATE INCREASED [None]
  - OROPHARYNGEAL PAIN [None]
  - PAIN [None]
  - PLEURAL EFFUSION [None]
  - PNEUMONIA [None]
